FAERS Safety Report 25159467 (Version 1)
Quarter: 2025Q2

REPORT INFORMATION
  Report Type: Spontaneous
  Country: JP (occurrence: JP)
  Receive Date: 20250404
  Receipt Date: 20250404
  Transmission Date: 20250716
  Serious: Yes (Other)
  Sender: PANACEA BIOTEC
  Company Number: JP-PBT-010319

PATIENT
  Sex: Female

DRUGS (2)
  1. TACROLIMUS [Suspect]
     Active Substance: TACROLIMUS
     Indication: Sjogren^s syndrome
     Route: 065
  2. REBAMIPIDE [Suspect]
     Active Substance: REBAMIPIDE
     Indication: Sjogren^s syndrome
     Route: 065

REACTIONS (4)
  - Eye pain [Unknown]
  - Condition aggravated [Unknown]
  - Interstitial lung disease [Unknown]
  - Product used for unknown indication [Unknown]
